FAERS Safety Report 7274319-3 (Version None)
Quarter: 2011Q1

REPORT INFORMATION
  Report Type: 
  Country: None (occurrence: None)
  Receive Date: 20110131
  Receipt Date: 20110131
  Transmission Date: 20110831
  Serious: No
  Sender: FDA-Public Use
  Company Number: None

PATIENT
  Sex: Female
  Weight: 99.7913 kg

DRUGS (2)
  1. BETASERON [Suspect]
     Indication: MULTIPLE SCLEROSIS
     Dosage: ONE INJECTION EVERY OTHER DAY SQ
     Route: 058
     Dates: start: 20061215, end: 20110128
  2. TRIAD ALCOHOL SWABS [Concomitant]

REACTIONS (2)
  - INJECTION SITE INFECTION [None]
  - STAPHYLOCOCCAL INFECTION [None]
